FAERS Safety Report 7369287-X (Version None)
Quarter: 2011Q1

REPORT INFORMATION
  Report Type: 
  Country: None (occurrence: None)
  Receive Date: 20110323
  Receipt Date: 20110314
  Transmission Date: 20110831
  Serious: Yes (Other)
  Sender: FDA-Public Use
  Company Number: A0919316A

PATIENT
  Age: 68 Year
  Sex: Female
  Weight: 56.7 kg

DRUGS (8)
  1. FLOLAN [Suspect]
     Indication: PULMONARY ARTERIAL HYPERTENSION
     Dosage: 58NGKM UNKNOWN
     Route: 065
     Dates: start: 20030520
  2. KEFLEX [Suspect]
     Indication: URINARY TRACT INFECTION
     Route: 065
  3. METOPROLOL TARTRATE [Concomitant]
     Dosage: 25MG TWICE PER DAY
  4. ZAROXOLYN [Concomitant]
     Dosage: 5MG AS REQUIRED
  5. WARFARIN SODIUM [Concomitant]
     Dosage: 5MG PER DAY
  6. ALDACTONE [Concomitant]
     Dosage: 50MG PER DAY
  7. DIGOXIN [Concomitant]
     Dosage: 125MCG ALTERNATE DAYS
  8. DIGOXIN [Concomitant]
     Dosage: 250MCG ALTERNATE DAYS

REACTIONS (9)
  - SYNCOPE [None]
  - PERICARDIAL EXCISION [None]
  - HIP ARTHROPLASTY [None]
  - CARDIAC FAILURE CONGESTIVE [None]
  - UPPER RESPIRATORY TRACT INFECTION [None]
  - FALL [None]
  - URINARY TRACT INFECTION [None]
  - GALLBLADDER DISORDER [None]
  - TREATMENT FAILURE [None]
